FAERS Safety Report 15379141 (Version 1)
Quarter: 2018Q3

REPORT INFORMATION
  Report Type: Spontaneous
  Country: US (occurrence: US)
  Receive Date: 20180906
  Receipt Date: 20180906
  Transmission Date: 20181010
  Serious: No
  Sender: FDA-Public Use
  Company Number: None

PATIENT
  Age: 54 Year
  Sex: Female

DRUGS (1)
  1. CAPECITABINE TAB 500 MG [Suspect]
     Active Substance: CAPECITABINE
     Dates: start: 201805

REACTIONS (3)
  - Musculoskeletal stiffness [None]
  - Oral mucosal blistering [None]
  - Chest discomfort [None]

NARRATIVE: CASE EVENT DATE: 20180510
